FAERS Safety Report 7437172-0 (Version None)
Quarter: 2011Q2

REPORT INFORMATION
  Report Type: 
  Country: None (occurrence: None)
  Receive Date: 20110426
  Receipt Date: 20110419
  Transmission Date: 20111010
  Serious: Yes (Other)
  Sender: FDA-Public Use
  Company Number: US-JNJFOC-20110304865

PATIENT
  Sex: Female

DRUGS (1)
  1. LEVAQUIN [Suspect]
     Indication: SINUSITIS
     Route: 048

REACTIONS (5)
  - LIGAMENT SPRAIN [None]
  - POSTERIOR CAPSULE RUPTURE [None]
  - MENISCUS LESION [None]
  - HEPATITIS [None]
  - MUSCLE RUPTURE [None]
